FAERS Safety Report 18561804 (Version 1)
Quarter: 2020Q4

REPORT INFORMATION
  Report Type: Spontaneous
  Country: US (occurrence: US)
  Receive Date: 20201130
  Receipt Date: 20201130
  Transmission Date: 20210114
  Serious: Yes (Other)
  Sender: FDA-Public Use
  Company Number: US-ROCHE-2603064

PATIENT
  Age: 44 Year
  Sex: Female
  Weight: 68.3 kg

DRUGS (6)
  1. HERCEPTIN [Suspect]
     Active Substance: TRASTUZUMAB
     Indication: HER2 POSITIVE BREAST CANCER
     Route: 042
     Dates: start: 20180125
  2. ALBUTEROL. [Concomitant]
     Active Substance: ALBUTEROL
     Indication: ANAPHYLACTIC REACTION
     Route: 050
     Dates: start: 20200410
  3. TYLENOL [Concomitant]
     Active Substance: ACETAMINOPHEN
     Indication: ANAPHYLACTIC REACTION
     Route: 048
     Dates: start: 20200410
  4. FAMOTIDINE. [Concomitant]
     Active Substance: FAMOTIDINE
     Indication: ANAPHYLACTIC REACTION
     Route: 048
     Dates: start: 20200410
  5. DIPHENYLAMINE HYDROCHLORIDE [Concomitant]
     Indication: ANAPHYLACTIC REACTION
     Route: 040
     Dates: start: 20200410
  6. SOLU-CORTEF [Concomitant]
     Active Substance: HYDROCORTISONE SODIUM SUCCINATE
     Indication: ANAPHYLACTIC REACTION
     Route: 040
     Dates: start: 20200410

REACTIONS (1)
  - Anaphylactic reaction [Recovered/Resolved]

NARRATIVE: CASE EVENT DATE: 20200410
